FAERS Safety Report 8542348-5 (Version None)
Quarter: 2012Q3

REPORT INFORMATION
  Report Type: 
  Country: None (occurrence: None)
  Receive Date: 20120726
  Receipt Date: 20110906
  Transmission Date: 20120928
  Serious: Yes (Other)
  Sender: FDA-Public Use
  Company Number: US-ASTRAZENECA-2011SE53317

PATIENT
  Sex: Female

DRUGS (2)
  1. SEROQUEL [Suspect]
     Dosage: 300 MG IN THE MORNING AND 400 MG AT NIGHT
     Route: 048
  2. DILANTIN [Concomitant]
     Indication: EPILEPSY

REACTIONS (1)
  - CONVULSION [None]
